FAERS Safety Report 7373455-0 (Version None)
Quarter: 2011Q1

REPORT INFORMATION
  Report Type: 
  Country: None (occurrence: None)
  Receive Date: 20110325
  Receipt Date: 20110316
  Transmission Date: 20110831
  Serious: Yes (Hospitalization)
  Sender: FDA-Public Use
  Company Number: DE-BIOGENIDEC-2011BI009812

PATIENT
  Age: 41 Year
  Sex: Female
  Weight: 48 kg

DRUGS (1)
  1. AVONEX [Suspect]
     Indication: MULTIPLE SCLEROSIS
     Route: 030
     Dates: start: 20100501

REACTIONS (3)
  - APPENDICITIS [None]
  - ABDOMINAL PAIN [None]
  - CHILLS [None]
